FAERS Safety Report 6999283-3 (Version None)
Quarter: 2010Q3

REPORT INFORMATION
  Report Type: 
  Country: None (occurrence: None)
  Receive Date: 20100920
  Receipt Date: 20090803
  Transmission Date: 20110219
  Serious: No
  Sender: FDA-Public Use
  Company Number: US-ASTRAZENECA-2009UW21693

PATIENT
  Sex: Male

DRUGS (4)
  1. SEROQUEL XR [Suspect]
     Route: 048
  2. LORAZEPAM [Interacting]
  3. OXYCONTIN [Interacting]
  4. VALIUM [Interacting]

REACTIONS (2)
  - DRUG INTERACTION [None]
  - DYSARTHRIA [None]
